FAERS Safety Report 13595762 (Version 1)
Quarter: 2017Q2

REPORT INFORMATION
  Report Type: Spontaneous
  Country: US (occurrence: US)
  Receive Date: 20170531
  Receipt Date: 20170531
  Transmission Date: 20170830
  Serious: No
  Sender: FDA-Public Use
  Company Number: US-JNJFOC-20170503185

PATIENT
  Age: 71 Year
  Sex: Male
  Weight: 78.02 kg

DRUGS (1)
  1. TYLENOL EXTRA STRENGTH [Suspect]
     Active Substance: ACETAMINOPHEN
     Indication: PAIN
     Route: 048

REACTIONS (2)
  - Laceration [Not Recovered/Not Resolved]
  - Product container issue [Unknown]

NARRATIVE: CASE EVENT DATE: 20170502
